FAERS Safety Report 14067528 (Version 2)
Quarter: 2018Q1

REPORT INFORMATION
  Report Type: Report from Study
  Country: None (occurrence: US)
  Receive Date: 20171010
  Receipt Date: 20180112
  Transmission Date: 20180508
  Serious: Yes (Hospitalization, Other)
  Sender: FDA-Public Use
  Company Number: US-ABBVIE-17K-163-1956145-00

PATIENT
  Sex: Female

DRUGS (2)
  1. HUMIRA [Suspect]
     Active Substance: ADALIMUMAB
     Indication: RHEUMATOID ARTHRITIS
     Route: 058
  2. VITAMIN C [Suspect]
     Active Substance: ASCORBIC ACID
     Indication: NASOPHARYNGITIS
     Dosage: HIGH LEVEL OF VITAMIN C ADMINISTERED
     Route: 065

REACTIONS (8)
  - Limb mass [Unknown]
  - Nasopharyngitis [Unknown]
  - Blood potassium increased [Unknown]
  - Asthenia [Unknown]
  - Arthralgia [Unknown]
  - Fat tissue increased [Unknown]
  - Urinary tract infection [Unknown]
  - Heart rate decreased [Unknown]
